FAERS Safety Report 5152712-2 (Version None)
Quarter: 2006Q4

REPORT INFORMATION
  Report Type: 
  Country: None (occurrence: None)
  Receive Date: 20061109
  Receipt Date: 20061027
  Transmission Date: 20070319
  Serious: Yes (Other)
  Sender: FDA-Public Use
  Company Number: 2006131934

PATIENT
  Age: 56 Year
  Sex: Female
  Weight: 83.0083 kg

DRUGS (5)
  1. CHANTIX [Suspect]
     Indication: SMOKING CESSATION THERAPY
     Dates: start: 20060921
  2. TRAZODONE HCL [Concomitant]
  3. KLONOPIN [Concomitant]
  4. NEXIUM [Concomitant]
  5. LEXAPRO [Concomitant]

REACTIONS (10)
  - DYSKINESIA [None]
  - DYSPHAGIA [None]
  - GAIT DISTURBANCE [None]
  - HEAD TITUBATION [None]
  - INTERVERTEBRAL DISC PROTRUSION [None]
  - NASOPHARYNGEAL DISORDER [None]
  - PARALYSIS [None]
  - PARKINSON'S DISEASE [None]
  - PARKINSONIAN REST TREMOR [None]
  - TREMOR [None]
